FAERS Safety Report 8597958-6 (Version None)
Quarter: 2012Q3

REPORT INFORMATION
  Report Type: 
  Country: None (occurrence: None)
  Receive Date: 20120803
  Receipt Date: 20111010
  Transmission Date: 20120928
  Serious: Yes (Death, Other)
  Sender: FDA-Public Use
  Company Number: 1074191

PATIENT
  Age: 49 Year
  Sex: Male

DRUGS (7)
  1. PROCARBAZINE HYDROCHLORIDE [Suspect]
     Indication: HODGKIN'S DISEASE
     Dosage: 100 MG/M2, ORAL
     Route: 048
  2. PREDNISOLONE [Suspect]
     Indication: HODGKIN'S DISEASE
     Dosage: 40 MG/M^2, ORAL
     Route: 048
  3. CYCLOPHOSPHAMIDE [Suspect]
     Indication: HODGKIN'S DISEASE
     Dosage: SEE IMAGE
     Route: 042
  4. ETOPOSIDE [Suspect]
     Indication: HODGKIN'S DISEASE
     Dosage: 200 MG/M^2 INTRAVENOUS
     Route: 042
  5. DOXORUBICIN HYDROCHLORIDE [Suspect]
     Indication: HODGKIN'S DISEASE
     Dosage: SEE IMAGE
     Route: 042
  6. BLEOMYCIN SULFATE [Suspect]
     Indication: HODGKIN'S DISEASE
     Dosage: 10000 IU, INTRAVENOUS
     Route: 042
  7. VINCRISTINE SULFATE [Suspect]
     Indication: HODGKIN'S DISEASE
     Dosage: 1.4 MG/M^2, INTRAVENOUS
     Route: 042

REACTIONS (4)
  - LUNG INFILTRATION [None]
  - BONE MARROW FAILURE [None]
  - PNEUMOCYSTIS JIROVECI INFECTION [None]
  - SEPTIC SHOCK [None]
